FAERS Safety Report 20845507 (Version 1)
Quarter: 2022Q2

REPORT INFORMATION
  Report Type: Spontaneous
  Country: CN (occurrence: CN)
  Receive Date: 20220518
  Receipt Date: 20220518
  Transmission Date: 20220721
  Serious: Yes (Other)
  Sender: FDA-Public Use
  Company Number: None

PATIENT
  Age: 34 Year
  Sex: Female
  Weight: 55.1 kg

DRUGS (12)
  1. CYCLOPHOSPHAMIDE [Suspect]
     Active Substance: CYCLOPHOSPHAMIDE
     Indication: Acute lymphocytic leukaemia
     Dosage: 0.400000 G TWICE DAILY (CYCLOPHOSPHAMIDE FOR INJECTION 0.4G + 0.9% SODIUM CHLORIDE INJECTION 30ML IV
     Route: 041
     Dates: start: 20220328, end: 20220330
  2. CYCLOPHOSPHAMIDE [Suspect]
     Active Substance: CYCLOPHOSPHAMIDE
     Dosage: DOSE REINTRODUCED, BID
     Route: 041
  3. SODIUM CHLORIDE [Suspect]
     Active Substance: SODIUM CHLORIDE
     Indication: Medication dilution
     Dosage: 30 ML TWICE DAILY, CYCLOPHOSPHAMIDE FOR INJECTION 0.4G + 0.9% SODIUM CHLORIDE INJECTION 30ML IVGTT
     Route: 041
     Dates: start: 20220328, end: 20220330
  4. SODIUM CHLORIDE [Suspect]
     Active Substance: SODIUM CHLORIDE
     Dosage: 250 ML ONCE DAILY (DOXORUBICIN HYDROCHLORIDE FOR INJECTION 60 MG + 0.9% SODIUM CHLORIDE INJECTION 25
     Route: 041
     Dates: start: 20220330, end: 20220330
  5. SODIUM CHLORIDE [Suspect]
     Active Substance: SODIUM CHLORIDE
     Dosage: 30 ML (FREQUENCY: ONCE 7 DAY)
     Route: 042
     Dates: start: 20220330, end: 20220407
  6. SODIUM CHLORIDE [Suspect]
     Active Substance: SODIUM CHLORIDE
     Dosage: DOSE REINTRODUCED, CYCLOPHOSPHAMIDE FOR INJECTION + 0.9% SODIUM CHLORIDE INJECTION 30ML IVGTT
     Route: 041
  7. SODIUM CHLORIDE [Suspect]
     Active Substance: SODIUM CHLORIDE
     Dosage: UNK, QD, DOSE REINTRODUCED, DOXORUBICIN HYDROCHLORIDE FOR INJECTION + 0.9% SODIUM CHLORIDE INJECTION
     Route: 041
  8. SODIUM CHLORIDE [Suspect]
     Active Substance: SODIUM CHLORIDE
     Dosage: FREQUENCY :ONCE 7 DAYS, DOSE REINTRODUCED, VINDESINE SULFATE FOR INJECTION+ 0.9% SODIUM CHLORIDE INJ
     Route: 042
  9. DOXORUBICIN HYDROCHLORIDE [Suspect]
     Active Substance: DOXORUBICIN HYDROCHLORIDE
     Indication: Acute lymphocytic leukaemia
     Dosage: 60.000000 MG ONCE DAILY, DOSAGE FORM: INJECTION, (DOXORUBICIN HYDROCHLORIDE FOR INJECTION 60 MG + 0.
     Route: 041
     Dates: start: 20220330, end: 20220330
  10. DOXORUBICIN HYDROCHLORIDE [Suspect]
     Active Substance: DOXORUBICIN HYDROCHLORIDE
     Dosage: DOSAGE FORM: INJECTION, DOSE REINTRODUCED
     Route: 065
  11. VINDESINE SULFATE [Suspect]
     Active Substance: VINDESINE SULFATE
     Indication: Acute lymphocytic leukaemia
     Dosage: 4.000000 MG, ONCE 7 DAYS, VINDESINE SULFATE FOR INJECTION+ 0.9% SODIUM CHLORIDE INJECTION IVGTT
     Route: 042
     Dates: start: 20220330, end: 20220407
  12. VINDESINE SULFATE [Suspect]
     Active Substance: VINDESINE SULFATE
     Dosage: FREQUENCY: ONCE 7 DAYS
     Route: 042

REACTIONS (3)
  - White blood cell count decreased [Recovering/Resolving]
  - Neutrophil count decreased [Recovering/Resolving]
  - Myelosuppression [Recovering/Resolving]

NARRATIVE: CASE EVENT DATE: 20220407
